FAERS Safety Report 6343135-9 (Version None)
Quarter: 2009Q3

REPORT INFORMATION
  Report Type: 
  Country: None (occurrence: None)
  Receive Date: 20090908
  Receipt Date: 20090901
  Transmission Date: 20100115
  Serious: Yes (Other)
  Sender: FDA-Public Use
  Company Number: US-BAYER-200928956NA

PATIENT
  Age: 33 Year
  Sex: Female
  Weight: 61 kg

DRUGS (2)
  1. MIRENA [Suspect]
     Indication: CONTRACEPTION
     Route: 015
     Dates: start: 20080701, end: 20081024
  2. VITAMIN TAB [Concomitant]

REACTIONS (4)
  - DYSPAREUNIA [None]
  - LICHEN SCLEROSUS [None]
  - PAIN [None]
  - PRURITUS [None]
